FAERS Safety Report 8547796-5 (Version None)
Quarter: 2012Q3

REPORT INFORMATION
  Report Type: 
  Country: None (occurrence: None)
  Receive Date: 20120727
  Receipt Date: 20120308
  Transmission Date: 20120928
  Serious: Yes (Hospitalization)
  Sender: FDA-Public Use
  Company Number: US-ASTRAZENECA-2012SE04080

PATIENT
  Age: 41 Year
  Sex: Female
  Weight: 72.6 kg

DRUGS (6)
  1. SEROQUEL XR [Suspect]
     Indication: DEPRESSION
     Route: 048
  2. SEROQUEL XR [Suspect]
     Route: 048
     Dates: start: 20120101
  3. SEROQUEL XR [Suspect]
     Indication: BIPOLAR DISORDER
     Route: 048
  4. SEROQUEL XR [Suspect]
     Route: 048
     Dates: start: 20120101
  5. SEROQUEL XR [Suspect]
     Route: 048
     Dates: start: 20120101
  6. SEROQUEL XR [Suspect]
     Route: 048
     Dates: start: 20120101

REACTIONS (10)
  - ANXIETY [None]
  - INSOMNIA [None]
  - CRYING [None]
  - DEPRESSION [None]
  - APATHY [None]
  - MALAISE [None]
  - ADVERSE EVENT [None]
  - ABULIA [None]
  - DRUG INEFFECTIVE [None]
  - CONSTIPATION [None]
